FAERS Safety Report 7426601-4 (Version None)
Quarter: 2011Q2

REPORT INFORMATION
  Report Type: 
  Country: None (occurrence: None)
  Receive Date: 20110420
  Receipt Date: 20110415
  Transmission Date: 20111010
  Serious: Yes (Other)
  Sender: FDA-Public Use
  Company Number: JP-GENZYME-THYM-1002386

PATIENT

DRUGS (12)
  1. METHOTREXATE [Concomitant]
     Indication: PROPHYLAXIS AGAINST GRAFT VERSUS HOST DISEASE
     Dosage: 15 MG/M2, QD
     Route: 065
  2. FLUDARA [Suspect]
     Indication: BONE MARROW CONDITIONING REGIMEN
     Dosage: 25 MG/M2, QD
     Route: 065
  3. GRANULOCYTE COLONY STIMULATING FACTOR [Concomitant]
     Indication: PRODUCT USED FOR UNKNOWN INDICATION
     Route: 065
  4. CYCLOPHOSPHAMIDE [Concomitant]
     Indication: BONE MARROW CONDITIONING REGIMEN
     Dosage: 750 MG/M2, QD
     Route: 065
  5. TOTAL BODY IRRADIATION [Concomitant]
     Indication: BONE MARROW CONDITIONING REGIMEN
     Dosage: UNK
     Route: 065
  6. TACROLIMUS [Concomitant]
     Indication: CHRONIC GRAFT VERSUS HOST DISEASE
  7. METHOTREXATE [Concomitant]
     Dosage: 10 MG/M2, QD
     Route: 065
  8. ACYCLOVIR [Concomitant]
     Indication: ANTIVIRAL PROPHYLAXIS
     Route: 065
  9. TRIMETHOPRIM + SULFAMETHOXAZOLE [Suspect]
     Indication: ANTIFUNGAL PROPHYLAXIS
  10. THYMOGLOBULIN [Suspect]
     Indication: BONE MARROW CONDITIONING REGIMEN
     Dosage: 2.5 MG/KG, QD
     Route: 042
  11. TACROLIMUS [Concomitant]
     Indication: PROPHYLAXIS AGAINST GRAFT VERSUS HOST DISEASE
     Dosage: 0.02 MG/KG, QD
     Route: 042
  12. AMPHOTERICIN B [Concomitant]
     Indication: ANTIFUNGAL PROPHYLAXIS
     Route: 065

REACTIONS (5)
  - SEPSIS [None]
  - CYTOMEGALOVIRUS TEST POSITIVE [None]
  - ENGRAFTMENT SYNDROME [None]
  - CHRONIC GRAFT VERSUS HOST DISEASE [None]
  - EPSTEIN-BARR VIRUS INFECTION [None]
